FAERS Safety Report 16546972 (Version 2)
Quarter: 2019Q3

REPORT INFORMATION
  Report Type: Spontaneous
  Country: TR (occurrence: TR)
  Receive Date: 20190709
  Receipt Date: 20190712
  Transmission Date: 20191004
  Serious: Yes (Other)
  Sender: FDA-Public Use
  Company Number: PHHY2019TR155379

PATIENT
  Age: 41 Year
  Sex: Male

DRUGS (1)
  1. ETANERCEPT [Suspect]
     Active Substance: ETANERCEPT
     Indication: SPONDYLOARTHROPATHY
     Dosage: 50 MG, QW
     Route: 065
     Dates: start: 201809

REACTIONS (8)
  - Hepatosplenomegaly [Unknown]
  - Therapy non-responder [Unknown]
  - Endocarditis bacterial [Recovering/Resolving]
  - Tenosynovitis [Unknown]
  - Pyrexia [Recovering/Resolving]
  - Splinter haemorrhages [Unknown]
  - Mitral valve incompetence [Recovering/Resolving]
  - Weight decreased [Recovering/Resolving]

NARRATIVE: CASE EVENT DATE: 201901
